APPROVED DRUG PRODUCT: FLUCONAZOLE IN SODIUM CHLORIDE 0.9%
Active Ingredient: FLUCONAZOLE
Strength: 200MG/100ML (2MG/ML)
Dosage Form/Route: INJECTABLE;INJECTION
Application: A076736 | Product #001 | TE Code: AP
Applicant: HIKMA FARMACEUTICA PORTUGAL LDA
Approved: Aug 23, 2005 | RLD: No | RS: No | Type: RX